FAERS Safety Report 9769395 (Version 2)
Quarter: 2014Q1

REPORT INFORMATION
  Report Type: Report from Study
  Country: JP (occurrence: JP)
  Receive Date: 20131218
  Receipt Date: 20140218
  Transmission Date: 20141002
  Serious: Yes (Hospitalization, Other)
  Sender: FDA-Public Use
  Company Number: JP-JNJFOC-20131209025

PATIENT
  Age: 81 Year
  Sex: Female
  Weight: 45 kg

DRUGS (11)
  1. SIMPONI [Suspect]
     Indication: RHEUMATOID ARTHRITIS
     Route: 058
     Dates: start: 20130716, end: 20130716
  2. SIMPONI [Suspect]
     Indication: RHEUMATOID ARTHRITIS
     Route: 058
     Dates: start: 20130618, end: 20130618
  3. SIMPONI [Suspect]
     Indication: RHEUMATOID ARTHRITIS
     Route: 058
     Dates: start: 20130521, end: 20130521
  4. SIMPONI [Suspect]
     Indication: RHEUMATOID ARTHRITIS
     Route: 058
     Dates: start: 20130402, end: 20130402
  5. SIMPONI [Suspect]
     Indication: RHEUMATOID ARTHRITIS
     Route: 058
     Dates: start: 20130305, end: 20130305
  6. SIMPONI [Suspect]
     Indication: RHEUMATOID ARTHRITIS
     Route: 058
     Dates: start: 20130205, end: 20130205
  7. VOLTAREN SR [Concomitant]
     Indication: RHEUMATOID ARTHRITIS
     Route: 048
     Dates: start: 20120501
  8. BONALON [Concomitant]
     Indication: OSTEOPOROSIS
     Route: 048
  9. PYDOXAL [Concomitant]
     Indication: PROPHYLAXIS
     Route: 048
  10. MUCOSTA [Concomitant]
     Indication: PROPHYLAXIS
     Route: 048
  11. AMLODIN [Concomitant]
     Indication: HYPERTENSION
     Route: 048

REACTIONS (2)
  - Pneumonia [Recovering/Resolving]
  - Haemoglobin decreased [Recovering/Resolving]
